FAERS Safety Report 15322111 (Version 1)
Quarter: 2018Q3

REPORT INFORMATION
  Report Type: Spontaneous
  Country: US (occurrence: US)
  Receive Date: 20180827
  Receipt Date: 20180827
  Transmission Date: 20181010
  Serious: No
  Sender: FDA-Public Use
  Company Number: US-GLAXOSMITHKLINE-US2018152748

PATIENT
  Age: 8 Year
  Sex: Female

DRUGS (1)
  1. FLOVENT [Suspect]
     Active Substance: FLUTICASONE PROPIONATE
     Indication: ASTHMA
     Dosage: UNK
     Route: 055
     Dates: start: 20180820

REACTIONS (2)
  - Drug dose omission [Recovering/Resolving]
  - Wrong technique in device usage process [Recovering/Resolving]

NARRATIVE: CASE EVENT DATE: 20180821
